FAERS Safety Report 8013487-2 (Version None)
Quarter: 2011Q4

REPORT INFORMATION
  Report Type: 
  Country: None (occurrence: None)
  Receive Date: 20111227
  Receipt Date: 20111227
  Transmission Date: 20120403
  Serious: Yes (Hospitalization)
  Sender: FDA-Public Use
  Company Number: None

PATIENT
  Age: 62 Year
  Sex: Male
  Weight: 64.3 kg

DRUGS (2)
  1. ROSUVASTATIN [Suspect]
     Indication: BLOOD CHOLESTEROL
     Dosage: 10 MG EVERY DAY PO
     Route: 048
     Dates: start: 20110915, end: 20111209
  2. ARIPIPRAZOLE [Suspect]
     Indication: SCHIZOPHRENIA
     Dosage: 7.5 MG EVERY DAY PO
     Route: 048
     Dates: start: 20050520, end: 20111209

REACTIONS (1)
  - RHABDOMYOLYSIS [None]
